FAERS Safety Report 10456708 (Version 1)
Quarter: 2014Q3

REPORT INFORMATION
  Report Type: Spontaneous
  Country: US (occurrence: US)
  Receive Date: 20140916
  Receipt Date: 20140916
  Transmission Date: 20150326
  Serious: No
  Sender: FDA-Public Use
  Company Number: US-PFIZER INC-2014252333

PATIENT
  Sex: Male

DRUGS (1)
  1. GABAPENTIN. [Suspect]
     Active Substance: GABAPENTIN
     Indication: NEUROPATHY PERIPHERAL
     Dosage: 300 MG, CAPSULES

REACTIONS (5)
  - Neuralgia [Unknown]
  - Pain [Not Recovered/Not Resolved]
  - Disease progression [Unknown]
  - Nightmare [Unknown]
  - Fatigue [Unknown]
